FAERS Safety Report 9024604 (Version 1)
Quarter: 2013Q1

REPORT INFORMATION
  Report Type: Spontaneous
  Country: DE (occurrence: None)
  Receive Date: 20130103
  Receipt Date: 20130103
  Transmission Date: 20140127
  Serious: Yes (Hospitalization, Other)
  Sender: FDA-Public Use
  Company Number: 2012SP005092

PATIENT
  Age: 73 Year
  Sex: Male

DRUGS (2)
  1. FLUOROURACIL (FLUOROURACIL) [Suspect]
     Indication: OESOPHAGEAL CARCINOMA
  2. CIS-PLATINUM [Concomitant]

REACTIONS (5)
  - Myocardial ischaemia [None]
  - Atrial fibrillation [None]
  - Tachycardia [None]
  - Ventricular extrasystoles [None]
  - Cardiotoxicity [None]
